FAERS Safety Report 4784518-8 (Version None)
Quarter: 2005Q3

REPORT INFORMATION
  Report Type: 
  Country: None (occurrence: None)
  Receive Date: 20050930
  Receipt Date: 20050916
  Transmission Date: 20060218
  Serious: Yes (Hospitalization)
  Sender: FDA-Public Use
  Company Number: JP-JPN-A20052216

PATIENT
  Age: 74 Year
  Sex: Female
  Weight: 50 kg

DRUGS (8)
  1. PAXIL [Suspect]
     Indication: DEPRESSION
     Dosage: 10MG PER DAY
     Route: 048
     Dates: end: 20050922
  2. DEZOLAM [Concomitant]
     Dosage: 1.5MG PER DAY
     Route: 048
  3. NAUZELIN [Concomitant]
     Dosage: 10MG PER DAY
     Route: 048
  4. CONIEL [Concomitant]
     Dosage: 4MG PER DAY
     Route: 048
  5. TENORMIN [Concomitant]
     Indication: HYPERTENSION
     Dosage: 1TAB PER DAY
     Route: 048
     Dates: end: 20050905
  6. EBRANTIL [Concomitant]
     Indication: NEUROGENIC BLADDER
     Dosage: 2CAP PER DAY
     Route: 048
     Dates: end: 20050905
  7. LENDORMIN [Concomitant]
     Indication: INSOMNIA
     Dosage: 1TAB PER DAY
     Route: 048
  8. DEPAS [Concomitant]
     Indication: ANXIETY DISORDER
     Dosage: 3TAB PER DAY
     Route: 048

REACTIONS (4)
  - BLOOD CREATINE PHOSPHOKINASE INCREASED [None]
  - DEPRESSED LEVEL OF CONSCIOUSNESS [None]
  - HYPOKALAEMIA [None]
  - INAPPROPRIATE ANTIDIURETIC HORMONE SECRETION [None]
